FAERS Safety Report 9418145 (Version 3)
Quarter: 2013Q3

REPORT INFORMATION
  Report Type: Spontaneous
  Country: US (occurrence: US)
  Receive Date: 20130724
  Receipt Date: 20130820
  Transmission Date: 20140515
  Serious: Yes (Other)
  Sender: FDA-Public Use
  Company Number: US-JNJFOC-20130711436

PATIENT
  Age: 52 Year
  Sex: Male
  Weight: 115.21 kg

DRUGS (1)
  1. INVOKANA [Suspect]
     Indication: DIABETES MELLITUS
     Route: 048
     Dates: start: 20130604, end: 20130703

REACTIONS (3)
  - Gout [Recovering/Resolving]
  - Heart rate irregular [Unknown]
  - Arthralgia [Recovering/Resolving]
